FAERS Safety Report 8080709-1 (Version None)
Quarter: 2012Q1

REPORT INFORMATION
  Report Type: 
  Country: None (occurrence: None)
  Receive Date: 20120130
  Receipt Date: 20120130
  Transmission Date: 20120608
  Serious: Yes (Hospitalization, Other)
  Sender: FDA-Public Use
  Company Number: CA-JNJFOC-20110500209

PATIENT
  Age: 56 Year
  Sex: Female
  Weight: 71 kg

DRUGS (5)
  1. PANTOPRAZOLE SODIUM [Concomitant]
     Indication: RHEUMATOID ARTHRITIS
     Route: 048
  2. REMICADE [Suspect]
     Indication: RHEUMATOID ARTHRITIS
     Route: 042
  3. VOLTAREN [Concomitant]
     Indication: RHEUMATOID ARTHRITIS
     Route: 048
  4. METHOTREXATE [Concomitant]
     Indication: RHEUMATOID ARTHRITIS
     Route: 048
  5. FOLIC ACID [Concomitant]
     Indication: RHEUMATOID ARTHRITIS
     Dosage: 6 DAYS/WEEK

REACTIONS (4)
  - HYPOAESTHESIA [None]
  - OEDEMA [None]
  - ANGIOEDEMA [None]
  - EYELID PTOSIS [None]
